FAERS Safety Report 7374119-X (Version None)
Quarter: 2011Q1

REPORT INFORMATION
  Report Type: 
  Country: None (occurrence: None)
  Receive Date: 20110317
  Receipt Date: 20110310
  Transmission Date: 20110831
  Serious: Yes (Hospitalization)
  Sender: FDA-Public Use
  Company Number: 114150

PATIENT
  Age: 27 Year
  Sex: Female

DRUGS (1)
  1. CHLOROPROCALNE INJ. USP 3% 600MG/20ML - BEDFORD LABS, INC. [Suspect]
     Indication: ANAESTHESIA
     Dosage: 2ML/VIA EPDIURAL CATHETER
     Route: 008

REACTIONS (9)
  - SEXUAL DYSFUNCTION [None]
  - FAECAL INCONTINENCE [None]
  - DYSPAREUNIA [None]
  - CAUDA EQUINA SYNDROME [None]
  - INCORRECT ROUTE OF DRUG ADMINISTRATION [None]
  - URINARY RETENTION [None]
  - BACK PAIN [None]
  - ARACHNOIDITIS [None]
  - MUSCULAR WEAKNESS [None]
